FAERS Safety Report 13716096 (Version 1)
Quarter: 2017Q3

REPORT INFORMATION
  Report Type: Report from Study
  Country: None (occurrence: GB)
  Receive Date: 20170705
  Receipt Date: 20170705
  Transmission Date: 20171127
  Serious: Yes (Hospitalization)
  Sender: FDA-Public Use
  Company Number: GB-ABBVIE-17K-167-2025968-00

PATIENT
  Age: 60 Year
  Sex: Female

DRUGS (2)
  1. LEFLUNOMIDE. [Concomitant]
     Active Substance: LEFLUNOMIDE
     Indication: RHEUMATOID ARTHRITIS
  2. HUMIRA [Suspect]
     Active Substance: ADALIMUMAB
     Indication: RHEUMATOID ARTHRITIS
     Route: 058
     Dates: start: 20050721, end: 20170113

REACTIONS (6)
  - Vasculitis [Unknown]
  - Asthenia [Unknown]
  - Areflexia [Unknown]
  - Guillain-Barre syndrome [Unknown]
  - Mononeuropathy multiplex [Unknown]
  - Syncope [Unknown]

NARRATIVE: CASE EVENT DATE: 20170307
